FAERS Safety Report 19667308 (Version 3)
Quarter: 2021Q3

REPORT INFORMATION
  Report Type: Spontaneous
  Country: FR (occurrence: FR)
  Receive Date: 20210806
  Receipt Date: 20210907
  Transmission Date: 20211014
  Serious: Yes (Life-Threatening, Other)
  Sender: FDA-Public Use
  Company Number: FR-MYLANLABS-2021M1049036

PATIENT
  Age: 61 Year
  Sex: Female
  Weight: 83 kg

DRUGS (5)
  1. MEROPENEM ANHYDROUS [Concomitant]
     Active Substance: MEROPENEM ANHYDROUS
     Indication: SEPSIS
     Dosage: UNK
     Route: 042
     Dates: start: 20210115, end: 20210118
  2. CIPROFLOXACIN. [Suspect]
     Active Substance: CIPROFLOXACIN
     Indication: PRODUCT USED FOR UNKNOWN INDICATION
     Dosage: UNK
     Route: 042
     Dates: start: 20210113, end: 20210113
  3. LANSOPRAZOLE. [Suspect]
     Active Substance: LANSOPRAZOLE
     Indication: PRODUCT USED FOR UNKNOWN INDICATION
     Dosage: UNK
     Route: 048
     Dates: start: 20210113, end: 20210113
  4. PERINDOPRIL ARROW [Suspect]
     Active Substance: PERINDOPRIL
     Indication: HYPERTENSION
     Dosage: UNK
     Route: 048
     Dates: start: 20210111, end: 20210111
  5. AMLODIPINE BESILATE [Suspect]
     Active Substance: AMLODIPINE BESYLATE
     Indication: HYPERTENSION
     Dosage: UNK
     Route: 048
     Dates: start: 20210111

REACTIONS (2)
  - Cardio-respiratory arrest [Recovered/Resolved]
  - Respiratory tract oedema [Recovered/Resolved]

NARRATIVE: CASE EVENT DATE: 20210114
